FAERS Safety Report 8964368 (Version 2)
Quarter: 2016Q3

REPORT INFORMATION
  Report Type: Spontaneous
  Country: US (occurrence: US)
  Receive Date: 20121214
  Receipt Date: 20160822
  Transmission Date: 20161109
  Serious: No
  Sender: FDA-Public Use
  Company Number: US-GLAXOSMITHKLINE-A0977163A

PATIENT
  Sex: Male

DRUGS (3)
  1. AVODART [Suspect]
     Active Substance: DUTASTERIDE
     Indication: BENIGN PROSTATIC HYPERPLASIA
     Route: 048
     Dates: start: 2009
  2. ADVIL [Concomitant]
     Active Substance: IBUPROFEN
  3. AVODART [Suspect]
     Active Substance: DUTASTERIDE
     Dosage: 0.50 MG, QOD
     Dates: start: 2013

REACTIONS (4)
  - Libido decreased [Recovering/Resolving]
  - Ejaculation disorder [Unknown]
  - Erectile dysfunction [Recovering/Resolving]
  - Alopecia [Unknown]
